FAERS Safety Report 8395319-6 (Version None)
Quarter: 2012Q2

REPORT INFORMATION
  Report Type: 
  Country: None (occurrence: None)
  Receive Date: 20120524
  Receipt Date: 20120514
  Transmission Date: 20120825
  Serious: Yes (Death)
  Sender: FDA-Public Use
  Company Number: UTC-018795

PATIENT
  Age: 62 Year
  Sex: Male
  Weight: 88.64 kg

DRUGS (3)
  1. ASPIRIN [Concomitant]
  2. DIURETICS (DIURETICS) [Concomitant]
  3. TYVASO [Suspect]
     Indication: COR PULMONALE CHRONIC
     Dosage: 18 TO 54 MCGS (4 IN 1 D), INHALATION
     Route: 055
     Dates: start: 20110525

REACTIONS (1)
  - DEATH [None]
